FAERS Safety Report 8969020 (Version 3)
Quarter: 2013Q1

REPORT INFORMATION
  Report Type: Spontaneous
  Country: JP (occurrence: JP)
  Receive Date: 20121218
  Receipt Date: 20130213
  Transmission Date: 20140127
  Serious: Yes (Other)
  Sender: FDA-Public Use
  Company Number: JP-009507513-1211JPN000491

PATIENT
  Age: 80 Year
  Sex: Female

DRUGS (10)
  1. GASTER [Suspect]
     Indication: GASTRITIS
     Dosage: 5 MG, BID
     Route: 048
     Dates: start: 20100701
  2. GABAPENTIN ENACARBIL [Suspect]
     Indication: RESTLESS LEGS SYNDROME
     Dosage: 300 MG, UID/QD
     Route: 048
     Dates: start: 20120724, end: 20120807
  3. GABAPENTIN ENACARBIL [Suspect]
     Indication: FIBROMYALGIA
     Dosage: 300 MG, UID/QD
     Route: 048
     Dates: start: 20120904, end: 20121002
  4. GABAPENTIN ENACARBIL [Suspect]
     Dosage: 300 MG, UID/QD
     Route: 048
     Dates: start: 20121016
  5. MOBIC [Concomitant]
     Indication: BACK PAIN
     Dosage: UNK
     Dates: start: 20100701
  6. PREDONINE [Concomitant]
     Indication: ARTHRITIS
     Dosage: UNK
     Dates: start: 20100701
  7. LYRICA [Suspect]
     Indication: FIBROMYALGIA
     Dosage: 25 MG, BID
     Route: 048
     Dates: start: 20101216, end: 20121016
  8. DEPAS [Concomitant]
     Indication: INSOMNIA
     Dosage: UNK
     Route: 048
     Dates: start: 20100701
  9. GABAPEN [Concomitant]
     Indication: FIBROMYALGIA
     Dosage: UNK
     Dates: end: 20120724
  10. GABAPEN [Concomitant]
     Dosage: UNK
     Dates: start: 20120807, end: 20120904

REACTIONS (3)
  - Pain [Recovering/Resolving]
  - Burning sensation [Not Recovered/Not Resolved]
  - Intentional drug misuse [Unknown]
